FAERS Safety Report 20627473 (Version 1)
Quarter: 2022Q1

REPORT INFORMATION
  Report Type: Spontaneous
  Country: US (occurrence: US)
  Receive Date: 20220323
  Receipt Date: 20220323
  Transmission Date: 20220423
  Serious: No
  Sender: FDA-Public Use
  Company Number: US-GW PHARMA-202203USGW01414

PATIENT
  Sex: Female

DRUGS (2)
  1. EPIDIOLEX [Suspect]
     Active Substance: CANNABIDIOL
     Indication: Seizure
     Dosage: 200 MG, FREQUENCY NOT REPORTED
     Route: 048
     Dates: start: 20210927, end: 2021
  2. EPIDIOLEX [Suspect]
     Active Substance: CANNABIDIOL
     Dosage: 400 MG, FREQUENCY NOT REPORTED
     Route: 048
     Dates: start: 20211020

REACTIONS (5)
  - Hallucination, auditory [Unknown]
  - Condition aggravated [Unknown]
  - Insomnia [Unknown]
  - Agitation [Unknown]
  - Aggression [Unknown]
